FAERS Safety Report 7306864-6 (Version None)
Quarter: 2011Q1

REPORT INFORMATION
  Report Type: 
  Country: None (occurrence: None)
  Receive Date: 20110223
  Receipt Date: 20110211
  Transmission Date: 20110831
  Serious: Yes (Hospitalization)
  Sender: FDA-Public Use
  Company Number: US-BIOGENIDEC-2011BI005134

PATIENT
  Age: 56 Year
  Sex: Female
  Weight: 81 kg

DRUGS (15)
  1. FOSAMAX [Concomitant]
     Indication: OSTEOPOROSIS
     Route: 048
  2. TYSABRI [Suspect]
     Indication: MULTIPLE SCLEROSIS
     Route: 042
     Dates: start: 20080110
  3. ASPIRIN [Concomitant]
     Indication: PROPHYLAXIS
     Route: 048
  4. BACLOFEN [Concomitant]
     Indication: MUSCLE SPASTICITY
     Route: 048
  5. DOCUSATE SODIUM [Concomitant]
     Indication: CONSTIPATION
     Route: 048
  6. NEXIUM [Concomitant]
     Indication: GASTROOESOPHAGEAL REFLUX DISEASE
     Route: 048
  7. LORATADINE [Concomitant]
  8. LASIX [Concomitant]
     Indication: FLUID RETENTION
     Route: 048
  9. SANCTURA XL [Concomitant]
  10. AMBIEN [Concomitant]
  11. ALPRAZOLAM [Concomitant]
     Indication: ANXIETY
     Route: 048
  12. WELLBUTRIN [Concomitant]
     Indication: DEPRESSION
     Route: 048
  13. LEXAPRO [Concomitant]
     Indication: DEPRESSION
     Route: 048
  14. MELATONIN [Concomitant]
  15. PROVIGIL [Concomitant]

REACTIONS (1)
  - CELLULITIS [None]
